FAERS Safety Report 15714608 (Version 2)
Quarter: 2018Q4

REPORT INFORMATION
  Report Type: Spontaneous
  Country: US (occurrence: US)
  Receive Date: 20181212
  Receipt Date: 20181227
  Transmission Date: 20190205
  Serious: Yes (Death, Other)
  Sender: FDA-Public Use
  Company Number: US-ALKEM LABORATORIES LIMITED-US-ALKEM-2018-10837

PATIENT
  Age: 76 Year
  Sex: Female

DRUGS (1)
  1. HYDRALAZINE HYDROCHLORIDE. [Suspect]
     Active Substance: HYDRALAZINE HYDROCHLORIDE
     Indication: PRODUCT USED FOR UNKNOWN INDICATION
     Dosage: MORE THAN 1.1 YEAR, 100 MG
     Route: 065

REACTIONS (4)
  - Lung infiltration [Unknown]
  - Glomerulonephritis [Unknown]
  - Diverticular perforation [Fatal]
  - Anti-neutrophil cytoplasmic antibody positive vasculitis [Unknown]
